FAERS Safety Report 11512624 (Version 1)
Quarter: 2015Q3

REPORT INFORMATION
  Report Type: Spontaneous
  Country: US (occurrence: None)
  Receive Date: 20150915
  Receipt Date: 20150915
  Transmission Date: 20151125
  Serious: Yes (Life-Threatening, Disabling, Other)
  Sender: FDA-Public Use
  Company Number: None

PATIENT
  Age: 36 Year
  Sex: Female
  Weight: 67.59 kg

DRUGS (12)
  1. BENADRYL [Concomitant]
     Active Substance: DIPHENHYDRAMINE HYDROCHLORIDE
  2. DIAZEPAM. [Suspect]
     Active Substance: DIAZEPAM
     Indication: ANXIETY
     Dosage: 2 PILLS, 3 TOTAL A DAY 2 IN AM 1 AT BEDTIME BY
     Dates: start: 20150826, end: 20150829
  3. PERCOCET [Concomitant]
     Active Substance: ACETAMINOPHEN\OXYCODONE HYDROCHLORIDE
  4. KEFLEX [Concomitant]
  5. PROZAC [Concomitant]
     Active Substance: FLUOXETINE HYDROCHLORIDE
  6. ZYRTEC D [Concomitant]
  7. VITAMIN D [Concomitant]
     Active Substance: CHOLECALCIFEROL
  8. DIAZEPAM. [Suspect]
     Active Substance: DIAZEPAM
     Indication: MUSCLE SPASMS
     Dosage: 2 PILLS, 3 TOTAL A DAY 2 IN AM 1 AT BEDTIME BY
     Dates: start: 20150826, end: 20150829
  9. PHENERGAN [Concomitant]
     Active Substance: PROMETHAZINE HYDROCHLORIDE
  10. PEPCID AC [Concomitant]
  11. OPANA ER [Concomitant]
  12. VALIUM [Concomitant]
     Active Substance: DIAZEPAM

REACTIONS (6)
  - Dizziness [None]
  - Irritability [None]
  - Dysgeusia [None]
  - Malaise [None]
  - Decreased appetite [None]
  - Cold sweat [None]

NARRATIVE: CASE EVENT DATE: 20150826
